FAERS Safety Report 8112414-7 (Version None)
Quarter: 2011Q4

REPORT INFORMATION
  Report Type: 
  Country: None (occurrence: None)
  Receive Date: 20111223
  Receipt Date: 20110302
  Transmission Date: 20120403
  Serious: No
  Sender: FDA-Public Use
  Company Number: PHHY2011US17632

PATIENT
  Age: 6 Year
  Sex: Male
  Weight: 29.5 kg

DRUGS (3)
  1. ADDERALL 10 [Suspect]
  2. RITALIN-SR [Suspect]
     Indication: ATTENTION DEFICIT/HYPERACTIVITY DISORDER
     Dosage: 20 MG, QD, ORAL
     Route: 048
     Dates: start: 20110225, end: 20110302
  3. RITALIN [Suspect]
     Indication: ATTENTION DEFICIT/HYPERACTIVITY DISORDER
     Dosage: 5 MG, ORAL
     Route: 048
     Dates: start: 20110302

REACTIONS (5)
  - AGGRESSION [None]
  - UNDERWEIGHT [None]
  - CRYING [None]
  - INSOMNIA [None]
  - IRRITABILITY [None]
